FAERS Safety Report 9187792 (Version 1)
Quarter: 2013Q1

REPORT INFORMATION
  Report Type: Spontaneous
  Country: US (occurrence: US)
  Receive Date: 20130325
  Receipt Date: 20130325
  Transmission Date: 20140127
  Serious: No
  Sender: FDA-Public Use
  Company Number: US-MYLANLABS-2012S1008422

PATIENT
  Age: 52 Year
  Sex: Male

DRUGS (5)
  1. FENTANYL TRANSDERMAL SYSTEM [Suspect]
     Indication: BACK PAIN
     Dosage: Q 72 HOURS
     Route: 062
     Dates: start: 20120410, end: 20120421
  2. FENTANYL TRANSDERMAL SYSTEM [Suspect]
     Indication: BACK PAIN
     Dosage: Q 72 HOURS
     Route: 062
     Dates: start: 20120421
  3. DIOVAN [Concomitant]
     Indication: BLOOD PRESSURE
  4. GABAPENTIN [Concomitant]
     Indication: NEURALGIA
  5. CARVEDILOL [Concomitant]
     Indication: BLOOD PRESSURE

REACTIONS (5)
  - Drug effect increased [Recovered/Resolved]
  - Somnolence [Recovered/Resolved]
  - Insomnia [Recovered/Resolved]
  - Hyperhidrosis [Recovered/Resolved]
  - Incorrect dose administered [Not Recovered/Not Resolved]
